FAERS Safety Report 21075960 (Version 2)
Quarter: 2022Q3

REPORT INFORMATION
  Report Type: Other
  Country: US (occurrence: None)
  Receive Date: 20220713
  Receipt Date: 20220718
  Transmission Date: 20221026
  Serious: Yes (Hospitalization)
  Sender: FDA-Public Use
  Company Number: US-ROCHE-3134009

PATIENT
  Sex: Female

DRUGS (1)
  1. XELODA [Suspect]
     Active Substance: CAPECITABINE
     Indication: Gallbladder cancer
     Dosage: TAKE 4 TABLETS BY MOUTH TWICE A DAY 2 WEEKS ON, 1 WEEK OFF
     Route: 048

REACTIONS (1)
  - Thrombosis [Unknown]
